FAERS Safety Report 21519368 (Version 1)
Quarter: 2022Q4

REPORT INFORMATION
  Report Type: Spontaneous
  Country: US (occurrence: None)
  Receive Date: 20221027
  Receipt Date: 20221027
  Transmission Date: 20230113
  Serious: Yes (Disabling, Other)
  Sender: FDA-Public Use
  Company Number: None

PATIENT
  Age: 47 Year
  Sex: Female
  Weight: 122.47 kg

DRUGS (5)
  1. EFFEXOR XR [Suspect]
     Active Substance: VENLAFAXINE HYDROCHLORIDE
     Indication: Depression
     Dosage: 1 CAPSULE ONCE-MORNING ORAL
     Route: 048
     Dates: start: 20220927
  2. EFFEXOR XR [Suspect]
     Active Substance: VENLAFAXINE HYDROCHLORIDE
     Indication: Anxiety disorder
  3. VIILBRYD [Concomitant]
  4. OLMESARTAN MEDOXIMIL/HYDROCHLOROTHIAZIDE [Concomitant]
  5. AMLODIPINE BESYLATE [Concomitant]
     Active Substance: AMLODIPINE BESYLATE

REACTIONS (2)
  - Pollakiuria [None]
  - Urinary incontinence [None]

NARRATIVE: CASE EVENT DATE: 20221005
